FAERS Safety Report 5704672-0 (Version None)
Quarter: 2008Q2

REPORT INFORMATION
  Report Type: 
  Country: None (occurrence: None)
  Receive Date: 20080414
  Receipt Date: 20080407
  Transmission Date: 20081010
  Serious: Yes (Hospitalization, Other)
  Sender: FDA-Public Use
  Company Number: PHHY2008SE04913

PATIENT
  Age: 78 Year
  Sex: Female

DRUGS (1)
  1. EXELON [Suspect]
     Indication: DEMENTIA ALZHEIMER'S TYPE
     Dosage: UNK, UNK
     Dates: start: 20080213, end: 20080301

REACTIONS (4)
  - ATRIAL FIBRILLATION [None]
  - ERYSIPELAS [None]
  - ERYTHEMA [None]
  - SEPSIS [None]
